FAERS Safety Report 4896547-4 (Version None)
Quarter: 2005Q4

REPORT INFORMATION
  Report Type: 
  Country: None (occurrence: None)
  Receive Date: 20051221
  Receipt Date: 20051014
  Transmission Date: 20060501
  Serious: No
  Sender: FDA-Public Use
  Company Number: US154429

PATIENT
  Age: 59 Year
  Sex: Male
  Weight: 77.5 kg

DRUGS (7)
  1. SENSIPAR [Suspect]
     Indication: HYPERPARATHYROIDISM SECONDARY
     Dosage: 30 MG, 3 IN 1 WEEKS, PO
     Route: 048
     Dates: start: 20050401
  2. PHOSLO [Concomitant]
  3. OMEPRAZOLE [Concomitant]
  4. DIATX [Concomitant]
  5. TOPROL-XL [Concomitant]
  6. ACETYLSALICYLIC ACID SRT [Concomitant]
  7. IRON [Concomitant]

REACTIONS (2)
  - DECREASED APPETITE [None]
  - WEIGHT DECREASED [None]
